FAERS Safety Report 8605021-0 (Version None)
Quarter: 2012Q3

REPORT INFORMATION
  Report Type: 
  Country: None (occurrence: None)
  Receive Date: 20120820
  Receipt Date: 20120810
  Transmission Date: 20120928
  Serious: Yes (Hospitalization)
  Sender: FDA-Public Use
  Company Number: US-JNJFOC-20120806861

PATIENT
  Sex: Male
  Weight: 17.2 kg

DRUGS (9)
  1. AMOXICILLIN [Suspect]
     Indication: EAR INFECTION
     Dates: start: 20120101
  2. REMICADE [Suspect]
     Indication: COLITIS ULCERATIVE
     Route: 042
     Dates: start: 20111209
  3. LANSOPRAZOLE [Concomitant]
  4. REMICADE [Suspect]
     Route: 042
     Dates: start: 20120226
  5. ALBUTEROL [Concomitant]
  6. MULTI-VITAMINS [Concomitant]
  7. REMICADE [Suspect]
     Route: 042
     Dates: start: 20120222
  8. PROBIOTICS [Concomitant]
  9. UNSPECIFIED EYE MEDICATION [Concomitant]

REACTIONS (1)
  - COLITIS ULCERATIVE [None]
